FAERS Safety Report 23488865 (Version 1)
Quarter: 2024Q1

REPORT INFORMATION
  Report Type: Spontaneous
  Country: CA (occurrence: CA)
  Receive Date: 20240206
  Receipt Date: 20240206
  Transmission Date: 20240409
  Serious: Yes (Hospitalization, Other)
  Sender: FDA-Public Use
  Company Number: CA-FRESENIUS KABI-FK202202819

PATIENT
  Age: 65 Year
  Sex: Male

DRUGS (2)
  1. ETOPOSIDE [Suspect]
     Active Substance: ETOPOSIDE
     Indication: Product used for unknown indication
     Dosage: DOSAGE FORM: INJECTION
     Route: 042
  2. CISPLATIN [Concomitant]
     Active Substance: CISPLATIN
     Indication: Product used for unknown indication
     Dosage: CISPLATIN INJECTION, BP SINGLE DOSE VIALS. 10MG/10ML, 50MG/50ML AND 100MG/100ML.PRESERVATIVE-FREE?FO

REACTIONS (3)
  - Acute coronary syndrome [Recovering/Resolving]
  - Product quality issue [Recovering/Resolving]
  - Dyspnoea [Recovering/Resolving]
